FAERS Safety Report 5541919-8 (Version None)
Quarter: 2007Q4

REPORT INFORMATION
  Report Type: 
  Country: None (occurrence: None)
  Receive Date: 20071205
  Receipt Date: 20071123
  Transmission Date: 20080405
  Serious: Yes (Hospitalization)
  Sender: FDA-Public Use
  Company Number: GXKR2007JP10095

PATIENT
  Age: 11 Year
  Sex: Male

DRUGS (3)
  1. METHYLPREDNISOLONE [Suspect]
     Indication: IMMUNOSUPPRESSION
  2. MIZORIBINE(MIZORIBINE) [Suspect]
     Indication: IMMUNOSUPPRESSION
  3. TACROLIMUS [Suspect]
     Indication: IMMUNOSUPPRESSION

REACTIONS (4)
  - ABDOMINAL PAIN [None]
  - HEPATIC FUNCTION ABNORMAL [None]
  - LYMPHOPROLIFERATIVE DISORDER [None]
  - TRANSAMINASES INCREASED [None]
